FAERS Safety Report 10551194 (Version 1)
Quarter: 2014Q4

REPORT INFORMATION
  Report Type: Spontaneous
  Country: KZ (occurrence: None)
  Receive Date: 20141027
  Receipt Date: 20141027
  Transmission Date: 20150529
  Serious: No
  Sender: FDA-Public Use
  Company Number: KZ2014GSK000943

PATIENT
  Age: 38 Year
  Sex: Female
  Weight: 71 kg

DRUGS (2)
  1. VIROLEX (ACYCLOVIR) [Suspect]
     Active Substance: ACYCLOVIR
     Indication: HIV INFECTION
     Route: 048
     Dates: start: 20131114, end: 20131204
  2. COMBIVIR [Suspect]
     Active Substance: LAMIVUDINE\ZIDOVUDINE
     Indication: HIV INFECTION
     Route: 048
     Dates: start: 20131114, end: 20131204

REACTIONS (3)
  - Nausea [None]
  - Dermatitis allergic [None]
  - Vomiting [None]

NARRATIVE: CASE EVENT DATE: 20131120
